FAERS Safety Report 19841250 (Version 2)
Quarter: 2021Q4

REPORT INFORMATION
  Report Type: Other
  Country: US (occurrence: None)
  Receive Date: 20210916
  Receipt Date: 20211101
  Transmission Date: 20220304
  Serious: Yes (Hospitalization)
  Sender: FDA-Public Use
  Company Number: US-ROCHE-2909332

PATIENT
  Age: 2 Year
  Sex: Male
  Weight: 8.595 kg

DRUGS (2)
  1. NUTROPIN [Suspect]
     Active Substance: SOMATROPIN
     Indication: Short stature homeobox gene mutation
     Route: 058
  2. NUTROPIN [Suspect]
     Active Substance: SOMATROPIN

REACTIONS (4)
  - Respiratory distress [Recovered/Resolved]
  - Viral infection [Recovered/Resolved]
  - Gastrooesophageal reflux disease [Unknown]
  - Ear tube insertion [Unknown]

NARRATIVE: CASE EVENT DATE: 20210201
